FAERS Safety Report 7343778-X (Version None)
Quarter: 2011Q1

REPORT INFORMATION
  Report Type: 
  Country: None (occurrence: None)
  Receive Date: 20110310
  Receipt Date: 20110228
  Transmission Date: 20110831
  Serious: Yes (Hospitalization)
  Sender: FDA-Public Use
  Company Number: FR-EISAI INC-E7273-00213-SPO-FR

PATIENT
  Sex: Male
  Weight: 69 kg

DRUGS (3)
  1. INTERFERON [Concomitant]
     Route: 065
     Dates: start: 20090901, end: 20100301
  2. CAELYX [Suspect]
     Dates: start: 20101001
  3. TARGRETIN [Suspect]
     Indication: MYCOSIS FUNGOIDES
     Dosage: UNKNOWN
     Route: 048
     Dates: start: 20100301, end: 20100901

REACTIONS (5)
  - STAPHYLOCOCCAL SEPSIS [None]
  - THYROID CANCER [None]
  - HYPOTHYROIDISM [None]
  - BLOOD CALCITONIN INCREASED [None]
  - NODULE [None]
